FAERS Safety Report 23313698 (Version 5)
Quarter: 2024Q3

REPORT INFORMATION
  Report Type: Spontaneous
  Country: US (occurrence: US)
  Receive Date: 20231219
  Receipt Date: 20240717
  Transmission Date: 20241016
  Serious: Yes (Other)
  Sender: SANOFI AVENTIS
  Company Number: US-SA-2023SA387011

PATIENT
  Age: 53 Year
  Sex: Female

DRUGS (7)
  1. DUPIXENT [Suspect]
     Active Substance: DUPILUMAB
     Indication: Dermatitis atopic
     Dosage: 600 MG, 1X
     Route: 058
     Dates: start: 202310, end: 202310
  2. DUPIXENT [Suspect]
     Active Substance: DUPILUMAB
     Dosage: 300 MG, Q15D
     Route: 058
     Dates: start: 2023
  3. DUPIXENT [Suspect]
     Active Substance: DUPILUMAB
     Dosage: 300 MG, Q15D
     Route: 058
  4. MELOXICAM [Concomitant]
     Active Substance: MELOXICAM
     Dosage: UNK
     Dates: end: 202401
  5. BENZTROPINE [Concomitant]
     Active Substance: BENZTROPINE
     Dosage: UNK
  6. HYDROXYZINE [Concomitant]
     Active Substance: HYDROXYZINE HYDROCHLORIDE
     Dosage: UNK
  7. RISPERIDONE [Concomitant]
     Active Substance: RISPERIDONE

REACTIONS (4)
  - Thyroid operation [Unknown]
  - Scratch [Unknown]
  - Hysteroscopy [Unknown]
  - Gait disturbance [Unknown]

NARRATIVE: CASE EVENT DATE: 20230101
